FAERS Safety Report 12835394 (Version 4)
Quarter: 2017Q1

REPORT INFORMATION
  Report Type: Report from Study
  Country: JP (occurrence: JP)
  Receive Date: 20161011
  Receipt Date: 20170306
  Transmission Date: 20170428
  Serious: Yes (Hospitalization, Other)
  Sender: FDA-Public Use
  Company Number: JP-BRISTOL-MYERS SQUIBB COMPANY-BMS-2016-084194

PATIENT
  Age: 69 Year
  Sex: Male
  Weight: 59.5 kg

DRUGS (19)
  1. MIYA-BM [Concomitant]
     Active Substance: CLOSTRIDIUM BUTYRICUM SPORES STRAIN M-55
     Indication: DIARRHOEA
     Dosage: UNK
     Route: 048
     Dates: start: 20150620
  2. PREDONINE [Concomitant]
     Active Substance: PREDNISOLONE
     Indication: DIARRHOEA
     Dosage: 60 MG, TID
     Route: 048
     Dates: start: 20160929
  3. TOPSYM [Concomitant]
     Indication: ECZEMA
     Dosage: UNK
     Route: 062
     Dates: start: 20170112
  4. GRACEVIT [Concomitant]
     Active Substance: SITAFLOXACIN
     Indication: LUNG INFECTION
     Dosage: 50 MG, QD
     Route: 048
     Dates: start: 20170213
  5. NIVOLUMAB [Suspect]
     Active Substance: NIVOLUMAB
     Indication: NON-SMALL CELL LUNG CANCER
     Dosage: 3 MG/KG, Q2WK
     Route: 042
     Dates: start: 20160602
  6. LOXOPROFEN [Concomitant]
     Active Substance: LOXOPROFEN
     Indication: CANCER PAIN
     Dosage: 180 MG, TID
     Route: 048
     Dates: start: 20150604
  7. MUCODYNE [Concomitant]
     Active Substance: CARBOCYSTEINE
     Indication: PRODUCTIVE COUGH
     Dosage: 1500 MG, TID
     Route: 048
     Dates: start: 20150606
  8. CANDESARTAN [Concomitant]
     Active Substance: CANDESARTAN
     Indication: HYPERTENSION
     Dosage: 4 MG, QD
     Route: 048
  9. MEPTIN [Concomitant]
     Active Substance: PROCATEROL HYDROCHLORIDE
     Indication: CHRONIC OBSTRUCTIVE PULMONARY DISEASE
     Dosage: 10 ?G, UNK
     Route: 050
     Dates: start: 20160929
  10. ELIQUIS [Concomitant]
     Active Substance: APIXABAN
     Indication: ATRIAL FIBRILLATION
     Dosage: 10 MG, BID
     Route: 048
     Dates: start: 20160220
  11. LANSOPRAZOLE. [Concomitant]
     Active Substance: LANSOPRAZOLE
     Indication: PRODUCT USED FOR UNKNOWN INDICATION
     Dosage: 15 MG, TID
     Route: 048
     Dates: start: 20150604
  12. CP COMBINATION [Concomitant]
     Indication: PRODUCT USED FOR UNKNOWN INDICATION
     Dosage: UNK
     Route: 065
  13. CALONAL [Concomitant]
     Active Substance: ACETAMINOPHEN
     Indication: PYREXIA
     Dosage: 500 MG, PRN
     Route: 048
  14. LOPERAMIDE [Concomitant]
     Active Substance: LOPERAMIDE
     Indication: DIARRHOEA
     Dosage: 1 MG, TID
     Route: 048
     Dates: start: 20160913
  15. LAMISIL [Concomitant]
     Active Substance: TERBINAFINE HYDROCHLORIDE
     Indication: TINEA PEDIS
     Dosage: UNK
     Route: 062
     Dates: start: 20170112
  16. CP COMBINATION [Concomitant]
     Indication: VITAMIN SUPPLEMENTATION
     Dosage: 3 G, UNK
     Route: 048
  17. LOCOID [Concomitant]
     Active Substance: HYDROCORTISONE BUTYRATE
     Indication: RASH
     Dosage: UNK UNK, QD
     Route: 062
     Dates: start: 20170213
  18. SPIRIVA [Concomitant]
     Active Substance: TIOTROPIUM BROMIDE MONOHYDRATE
     Indication: CHRONIC OBSTRUCTIVE PULMONARY DISEASE
     Dosage: 60 MG, TID
     Route: 050
     Dates: start: 20170213
  19. AZUNOL                             /00317302/ [Concomitant]
     Indication: STOMATITIS
     Dosage: UNK
     Route: 050
     Dates: start: 20170213

REACTIONS (2)
  - Enterocolitis [Recovered/Resolved]
  - Lung infection [Recovering/Resolving]

NARRATIVE: CASE EVENT DATE: 20161003
